FAERS Safety Report 15050322 (Version 1)
Quarter: 2018Q2

REPORT INFORMATION
  Report Type: Report from Study
  Country: CA (occurrence: CA)
  Receive Date: 20180622
  Receipt Date: 20180622
  Transmission Date: 20180711
  Serious: Yes (Other)
  Sender: FDA-Public Use
  Company Number: CA-HLSUS-2018-CA-000808

PATIENT
  Age: 45 Year
  Sex: Female

DRUGS (1)
  1. CLOZARIL [Suspect]
     Active Substance: CLOZAPINE
     Route: 048
     Dates: start: 20171221

REACTIONS (11)
  - Haematocrit decreased [Unknown]
  - Red blood cell elliptocytes present [Unknown]
  - Red cell distribution width increased [Unknown]
  - Thalassaemia [Unknown]
  - White blood cell count decreased [Unknown]
  - Mean cell volume abnormal [Unknown]
  - Haemoglobin decreased [Unknown]
  - Microcytosis [Unknown]
  - Mean cell haemoglobin decreased [Unknown]
  - Lymphocyte count decreased [Unknown]
  - Hypochromasia [Unknown]

NARRATIVE: CASE EVENT DATE: 20180525
